FAERS Safety Report 25503129 (Version 2)
Quarter: 2025Q3

REPORT INFORMATION
  Report Type: Spontaneous
  Country: GB (occurrence: GB)
  Receive Date: 20250702
  Receipt Date: 20250704
  Transmission Date: 20251020
  Serious: Yes (Hospitalization, Disabling, Other)
  Sender: ACCORD
  Company Number: None

PATIENT
  Age: 22 Year
  Sex: Male

DRUGS (24)
  1. CLOBAZAM [Suspect]
     Active Substance: CLOBAZAM
     Indication: Status epilepticus
  2. LACOSAMIDE [Suspect]
     Active Substance: LACOSAMIDE
     Indication: Status epilepticus
  3. FENTANYL [Suspect]
     Active Substance: FENTANYL
     Indication: Status epilepticus
  4. MIDAZOLAM [Suspect]
     Active Substance: MIDAZOLAM
     Indication: Status epilepticus
     Dosage: UP TO 20 MG/HR
  5. PHENYTOIN SODIUM [Suspect]
     Active Substance: PHENYTOIN SODIUM
     Indication: Epilepsy
  6. CLONAZEPAM [Suspect]
     Active Substance: CLONAZEPAM
     Indication: Status epilepticus
  7. LEVETIRACETAM [Suspect]
     Active Substance: LEVETIRACETAM
     Indication: Epilepsy
  8. TOPIRAMATE [Suspect]
     Active Substance: TOPIRAMATE
     Indication: Status epilepticus
  9. PHENOBARBITAL [Suspect]
     Active Substance: PHENOBARBITAL
  10. ACYCLOVIR [Suspect]
     Active Substance: ACYCLOVIR
     Indication: Evidence based treatment
  11. CEFTRIAXONE [Suspect]
     Active Substance: CEFTRIAXONE
     Indication: Evidence based treatment
  12. PROPOFOL [Suspect]
     Active Substance: PROPOFOL
     Indication: Status epilepticus
     Route: 042
  13. KETAMINE [Suspect]
     Active Substance: KETAMINE
     Indication: Status epilepticus
     Dosage: TITRATED UP TO 6 MG/KG/HR
     Route: 065
  14. THIOPENTAL [Suspect]
     Active Substance: THIOPENTAL
     Indication: Epilepsy
  15. PERAMPANEL [Suspect]
     Active Substance: PERAMPANEL
     Indication: Epilepsy
     Dosage: 14 MILLIGRAM, ONCE A DAY,ADDED ON DAY 142 SLOWLY UP-TITRATED
  16. VALPROATE SODIUM [Suspect]
     Active Substance: VALPROATE SODIUM
     Indication: Epilepsy
  17. METHYLPREDNISOLONE [Suspect]
     Active Substance: METHYLPREDNISOLONE
     Indication: Status epilepticus
  18. LORAZEPAM [Suspect]
     Active Substance: LORAZEPAM
     Indication: Epilepsy
  19. REMIFENTANIL HYDROCHLORIDE [Suspect]
     Active Substance: REMIFENTANIL HYDROCHLORIDE
     Indication: Sedation
  20. HUMAN PLASMA [Concomitant]
     Active Substance: HUMAN PLASMA
     Indication: Product used for unknown indication
  21. LORAZEPAM [Suspect]
     Active Substance: LORAZEPAM
     Indication: Paroxysmal sympathetic hyperactivity
  22. KETAMINE [Suspect]
     Active Substance: KETAMINE
     Indication: Epilepsy
  23. PROPOFOL [Suspect]
     Active Substance: PROPOFOL
     Indication: Sedative therapy
  24. METHYLPREDNISOLONE [Suspect]
     Active Substance: METHYLPREDNISOLONE
     Indication: Product used for unknown indication
     Dosage: 1 GRAM, ONCE A DAY,TWO SEPARATE PULSES

REACTIONS (32)
  - Acute kidney injury [Unknown]
  - Drug hypersensitivity [Unknown]
  - Intensive care unit acquired weakness [Unknown]
  - Behaviour disorder [Unknown]
  - Hypercalcaemia [Unknown]
  - Off label use [Unknown]
  - Liver function test abnormal [Unknown]
  - Haematuria [Unknown]
  - Thrombophlebitis [Unknown]
  - Tachycardia [Unknown]
  - Rash [Unknown]
  - Hypotension [Unknown]
  - Partial seizures [Not Recovered/Not Resolved]
  - Pyrexia [Unknown]
  - Bradycardia [Unknown]
  - Infection [Unknown]
  - Deep vein thrombosis [Unknown]
  - Cognitive disorder [Unknown]
  - Hypothyroidism [Unknown]
  - Weight decreased [Unknown]
  - Acute lung injury [Unknown]
  - Hypernatraemia [Unknown]
  - Fungal infection [Unknown]
  - Coagulopathy [Unknown]
  - Decubitus ulcer [Unknown]
  - Ileus [Unknown]
  - Muscle contracture [Unknown]
  - Memory impairment [Unknown]
  - Abdominal compartment syndrome [Unknown]
  - Anaemia [Unknown]
  - Product use in unapproved indication [Unknown]
  - Intentional product use issue [Unknown]
